FAERS Safety Report 15093343 (Version 1)
Quarter: 2018Q2

REPORT INFORMATION
  Report Type: Spontaneous
  Country: US (occurrence: US)
  Receive Date: 20180629
  Receipt Date: 20180629
  Transmission Date: 20180711
  Serious: Yes (Other)
  Sender: FDA-Public Use
  Company Number: US-COOPERSURGICAL, INC.-US-2018CPS000470

PATIENT

DRUGS (5)
  1. ZANTAC [Concomitant]
     Active Substance: RANITIDINE HYDROCHLORIDE
     Indication: PRODUCT USED FOR UNKNOWN INDICATION
     Dosage: 150 MG
     Route: 048
  2. MUPIROCIN. [Concomitant]
     Active Substance: MUPIROCIN
     Indication: PRODUCT USED FOR UNKNOWN INDICATION
     Dosage: 2 %
     Route: 061
  3. PARAGARD T 380A [Suspect]
     Active Substance: COPPER
     Indication: CONTRACEPTION
     Dosage: UNK
     Route: 015
     Dates: start: 2011, end: 20180419
  4. AMMONIUM LACTATE. [Concomitant]
     Active Substance: AMMONIUM LACTATE
     Indication: PRODUCT USED FOR UNKNOWN INDICATION
     Dosage: 12 %, UNK
     Route: 061
  5. DICYCLOMINE                        /00068601/ [Concomitant]
     Active Substance: DICYCLOMINE HYDROCHLORIDE
     Indication: PRODUCT USED FOR UNKNOWN INDICATION
     Dosage: 10 MG
     Route: 048

REACTIONS (7)
  - Discomfort [Unknown]
  - Pelvic pain [Unknown]
  - Foreign body in reproductive tract [Recovered/Resolved]
  - Menstruation irregular [Unknown]
  - Constipation [Recovering/Resolving]
  - Device breakage [Unknown]
  - Complication of device removal [Recovered/Resolved]

NARRATIVE: CASE EVENT DATE: 2018
